FAERS Safety Report 25030322 (Version 2)
Quarter: 2025Q3

REPORT INFORMATION
  Report Type: Report from Study
  Country: US (occurrence: US)
  Receive Date: 20250303
  Receipt Date: 20250802
  Transmission Date: 20251020
  Serious: Yes (Other)
  Sender: ALEXION PHARMACEUTICALS
  Company Number: US-AstraZeneca-CH-00814821A

PATIENT
  Sex: Female
  Weight: 74.8 kg

DRUGS (1)
  1. OLAPARIB [Suspect]
     Active Substance: OLAPARIB
     Indication: Breast cancer
     Dosage: 300 MILLIGRAM, BID
     Dates: start: 20240628

REACTIONS (7)
  - Neuropathy peripheral [Unknown]
  - Arthralgia [Unknown]
  - Taste disorder [Unknown]
  - Nausea [Unknown]
  - Fatigue [Unknown]
  - Skin exfoliation [Unknown]
  - Pain in extremity [Unknown]
